FAERS Safety Report 8938963 (Version 1)
Quarter: 2012Q4

REPORT INFORMATION
  Report Type: 
  Country: US (occurrence: US)
  Receive Date: 20121203
  Receipt Date: 20121203
  Transmission Date: 20130627
  Serious: No
  Sender: FDA-Public Use
  Company Number: US-PFIZER INC-2012296517

PATIENT
  Sex: Male

DRUGS (5)
  1. VIAGRA [Suspect]
     Dosage: UNK
  2. VIAGRA [Suspect]
     Dosage: 150 mg, UNK
  3. CIALIS [Suspect]
     Dosage: daily
  4. MICARDIS [Suspect]
     Indication: BLOOD PRESSURE HIGH
  5. BYSTOLIC [Suspect]
     Indication: BLOOD PRESSURE HIGH

REACTIONS (2)
  - Drug effect incomplete [Unknown]
  - Overdose [Unknown]
